FAERS Safety Report 9138075 (Version 1)
Quarter: 2013Q1

REPORT INFORMATION
  Report Type: Spontaneous
  Country: US (occurrence: US)
  Receive Date: 20130304
  Receipt Date: 20130304
  Transmission Date: 20140127
  Serious: No
  Sender: FDA-Public Use
  Company Number: US-TEVA-359204USA

PATIENT
  Age: 70 Year
  Sex: Male

DRUGS (8)
  1. TREANDA [Suspect]
     Indication: CHRONIC LYMPHOCYTIC LEUKAEMIA
     Dosage: 150 MILLIGRAM DAILY; 100 MG/VIAL
     Route: 042
  2. TREANDA [Suspect]
  3. RITUXAN [Concomitant]
  4. ACETAMINOPHEN [Concomitant]
  5. DIPHENHYDRAMINE [Concomitant]
  6. METHYLPREDNISOLONE [Concomitant]
  7. ONDANSETRON [Concomitant]
  8. ALOXI [Concomitant]

REACTIONS (1)
  - Rash [Not Recovered/Not Resolved]
